FAERS Safety Report 10173211 (Version 1)
Quarter: 2014Q2

REPORT INFORMATION
  Report Type: Spontaneous
  Country: CN (occurrence: CN)
  Receive Date: 20140515
  Receipt Date: 20140515
  Transmission Date: 20141212
  Serious: Yes (Life-Threatening, Other)
  Sender: FDA-Public Use
  Company Number: CN-BAXTER-2014BAX023301

PATIENT
  Age: 61 Year
  Sex: Female

DRUGS (2)
  1. 0.9% SODIUM CHLORIDE INJECTION [Suspect]
     Indication: MEDICATION DILUTION
     Route: 041
     Dates: start: 20130425, end: 20130428
  2. SALVIA LIGUSTRAZINE INJECTION [Suspect]
     Indication: PROMOTION OF PERIPHERAL CIRCULATION
     Route: 041
     Dates: start: 20130425, end: 20130428

REACTIONS (2)
  - Anaphylactic shock [Recovering/Resolving]
  - Pyrexia [Recovered/Resolved]
